FAERS Safety Report 7002643-8 (Version None)
Quarter: 2010Q3

REPORT INFORMATION
  Report Type: 
  Country: None (occurrence: None)
  Receive Date: 20100920
  Receipt Date: 20100909
  Transmission Date: 20110219
  Serious: Yes (Other)
  Sender: FDA-Public Use
  Company Number: US-PFIZER INC-2010114594

PATIENT
  Sex: Female
  Weight: 81.633 kg

DRUGS (4)
  1. CHANTIX [Suspect]
     Indication: SMOKING CESSATION THERAPY
     Dosage: UNK
     Route: 048
     Dates: start: 20090101
  2. CHANTIX [Suspect]
     Dosage: UNK
     Route: 048
     Dates: start: 20100815, end: 20100905
  3. LIPITOR [Concomitant]
     Dosage: UNK
     Route: 048
  4. AMBIEN [Concomitant]
     Indication: SLEEP DISORDER
     Dosage: UNK
     Route: 048

REACTIONS (4)
  - CONFUSIONAL STATE [None]
  - CONTUSION [None]
  - HEAD INJURY [None]
  - SYNCOPE [None]
